FAERS Safety Report 25655485 (Version 2)
Quarter: 2025Q3

REPORT INFORMATION
  Report Type: Spontaneous
  Country: US (occurrence: US)
  Receive Date: 20250807
  Receipt Date: 20250902
  Transmission Date: 20251021
  Serious: Yes (Other)
  Sender: TEVA
  Company Number: US-TEVA-VS-3357991

PATIENT
  Age: 16 Year
  Sex: Female

DRUGS (6)
  1. EFINACONAZOLE [Suspect]
     Active Substance: EFINACONAZOLE
     Indication: Onychomycosis
     Route: 065
  2. EFINACONAZOLE [Suspect]
     Active Substance: EFINACONAZOLE
     Indication: Candida infection
  3. ITRACONAZOLE [Suspect]
     Active Substance: ITRACONAZOLE
     Indication: Onychomycosis
     Route: 065
  4. FLUCONAZOLE [Suspect]
     Active Substance: FLUCONAZOLE
     Indication: Onychomycosis
     Route: 065
  5. TERBINAFINE [Suspect]
     Active Substance: TERBINAFINE
     Indication: Onychomycosis
     Route: 065
  6. DEVICE [Suspect]
     Active Substance: DEVICE
     Route: 065

REACTIONS (3)
  - Therapy non-responder [Unknown]
  - Hepatic enzyme increased [Unknown]
  - Nausea [Unknown]
